FAERS Safety Report 9547496 (Version 1)
Quarter: 2013Q3

REPORT INFORMATION
  Report Type: Spontaneous
  Country: US (occurrence: None)
  Receive Date: 20130920
  Receipt Date: 20130920
  Transmission Date: 20140515
  Serious: Yes (Hospitalization)
  Sender: FDA-Public Use
  Company Number: 2013AP008093

PATIENT
  Age: 47 Year
  Sex: Female

DRUGS (5)
  1. CITALOPRAM [Suspect]
     Indication: SCHIZOPHRENIA
  2. ONDANSETRON HYDROCHLORIDE [Suspect]
     Indication: GASTROENTERITIS VIRAL
     Dosage: UNK.UNK
  3. PROMETHAZINE [Concomitant]
  4. CLOZAPINE [Suspect]
     Indication: SCHIZOPHRENIA
  5. METOCLOPRAMIDE [Suspect]
     Indication: GASTROENTERITIS VIRAL

REACTIONS (3)
  - Serotonin syndrome [None]
  - Drug administration error [None]
  - Unresponsive to stimuli [None]
